FAERS Safety Report 9011962 (Version 2)
Quarter: 2014Q3

REPORT INFORMATION
  Report Type: Spontaneous
  Country: US (occurrence: US)
  Receive Date: 20130114
  Receipt Date: 20140716
  Transmission Date: 20150326
  Serious: Yes (Other)
  Sender: FDA-Public Use
  Company Number: US-BAYER-2013-003809

PATIENT
  Age: 28 Year
  Sex: Female
  Weight: 126 kg

DRUGS (1)
  1. MIRENA [Suspect]
     Active Substance: LEVONORGESTREL
     Dosage: 20 MCG/24HR, CONT
     Route: 015
     Dates: start: 200712, end: 20130107

REACTIONS (5)
  - Drug ineffective [None]
  - Breast tenderness [None]
  - Abortion spontaneous [None]
  - Pregnancy with contraceptive device [None]
  - Device misuse [None]

NARRATIVE: CASE EVENT DATE: 20130117
